FAERS Safety Report 17568923 (Version 7)
Quarter: 2020Q3

REPORT INFORMATION
  Report Type: Spontaneous
  Country: US (occurrence: US)
  Receive Date: 20200321
  Receipt Date: 20200904
  Transmission Date: 20201102
  Serious: No
  Sender: FDA-Public Use
  Company Number: NVSC2020US081603

PATIENT
  Sex: Female

DRUGS (2)
  1. ZOFRAN [Suspect]
     Active Substance: ONDANSETRON HYDROCHLORIDE
     Indication: MORNING SICKNESS
     Dosage: UNK
     Route: 048
  2. ONDANSETRON [Suspect]
     Active Substance: ONDANSETRON
     Indication: MORNING SICKNESS
     Dosage: UNK
     Route: 065
     Dates: start: 200204, end: 200211

REACTIONS (7)
  - Anxiety [Unknown]
  - Product use in unapproved indication [Unknown]
  - Pain [Unknown]
  - Anhedonia [Unknown]
  - Maternal exposure during pregnancy [Unknown]
  - Toothache [Unknown]
  - Emotional distress [Unknown]
